FAERS Safety Report 12461785 (Version 2)
Quarter: 2016Q3

REPORT INFORMATION
  Report Type: Report from Study
  Country: TR (occurrence: TR)
  Receive Date: 20160613
  Receipt Date: 20160728
  Transmission Date: 20161109
  Serious: Yes (Life-Threatening, Hospitalization)
  Sender: FDA-Public Use
  Company Number: TR-SA-2016SA109811

PATIENT
  Age: 9 Month
  Sex: Female
  Weight: 8 kg

DRUGS (6)
  1. ENALAPRIL [Concomitant]
     Active Substance: ENALAPRIL
     Route: 048
  2. ECULIZUMAB [Concomitant]
     Active Substance: ECULIZUMAB
     Route: 042
  3. CAMPATH [Suspect]
     Active Substance: ALEMTUZUMAB
     Indication: COMBINED IMMUNODEFICIENCY
     Route: 065
     Dates: start: 20160308, end: 20160310
  4. SPIRONOLACTONE. [Concomitant]
     Active Substance: SPIRONOLACTONE
     Route: 048
  5. TACROLIMUS. [Suspect]
     Active Substance: TACROLIMUS
     Indication: GRAFT VERSUS HOST DISEASE
     Route: 048
     Dates: start: 20160418, end: 20160425
  6. AMLODIPIN [Concomitant]
     Active Substance: AMLODIPINE BESYLATE
     Route: 048

REACTIONS (9)
  - Microangiopathy [Not Recovered/Not Resolved]
  - Haemolysis [Unknown]
  - Hypertension [Unknown]
  - Oliguria [Unknown]
  - Kidney enlargement [Unknown]
  - Oedema [Unknown]
  - Haematuria [Unknown]
  - Acute kidney injury [Not Recovered/Not Resolved]
  - Rash [Unknown]

NARRATIVE: CASE EVENT DATE: 20160412
